FAERS Safety Report 9617428 (Version 2)
Quarter: 2013Q4

REPORT INFORMATION
  Report Type: Spontaneous
  Country: CA (occurrence: CA)
  Receive Date: 20131011
  Receipt Date: 20131011
  Transmission Date: 20140711
  Serious: Yes (Hospitalization, Other)
  Sender: FDA-Public Use
  Company Number: PHHY2013CA108067

PATIENT
  Sex: Female

DRUGS (13)
  1. CLOZARIL [Suspect]
     Indication: SCHIZOPHRENIA
     Dosage: 225 MG/DAY
     Route: 048
     Dates: start: 20000719, end: 20130913
  2. CLONAZEPAN [Concomitant]
     Dosage: 1.5 MG, UNK
  3. PANTOPRAZOLE [Concomitant]
     Dosage: 40 MG, (3XWEEKS)
  4. CALCIUM [Concomitant]
     Dosage: 500 MG, BID
     Dates: start: 20130912
  5. VITAMIN D [Concomitant]
     Dosage: UNK UKN, UNK
  6. TYLENOL [Concomitant]
     Dosage: UNK UKN, UNK
  7. ACETAMINOPHEN [Concomitant]
     Dosage: 650 MG, Q6H, PRN
  8. OLANZAPINE [Concomitant]
     Dosage: 10 MG, UNK
     Dates: start: 20130920
  9. OXYBUTYNIN [Concomitant]
     Dosage: 2.5 MG, UNK
  10. SODIUM CHLORIDE [Concomitant]
     Dosage: UNK UKN, UNK
  11. POTASSIUM CHLORIDE [Concomitant]
     Dosage: UNK UKN, UNK
  12. DEXTROSE [Concomitant]
     Dosage: UNK UKN, UNK
  13. SODIUM BICARBONATE [Concomitant]
     Dosage: UNK UKN, UNK

REACTIONS (4)
  - Rhabdomyolysis [Recovering/Resolving]
  - Blood creatine phosphokinase increased [Recovering/Resolving]
  - Musculoskeletal stiffness [Recovering/Resolving]
  - Tonic clonic movements [Recovering/Resolving]
